FAERS Safety Report 14731512 (Version 1)
Quarter: 2018Q2

REPORT INFORMATION
  Report Type: Spontaneous
  Country: IT (occurrence: IT)
  Receive Date: 20180407
  Receipt Date: 20180407
  Transmission Date: 20180711
  Serious: Yes (Hospitalization)
  Sender: FDA-Public Use
  Company Number: IT-AUROBINDO-AUR-APL-2018-018833

PATIENT
  Age: 58 Year
  Sex: Female

DRUGS (7)
  1. FENTANYL. [Suspect]
     Active Substance: FENTANYL
     Indication: BREAKTHROUGH PAIN
     Dosage: 600 MICROGRAM DAILY;
     Route: 062
  2. MORFINA                            /00036301/ [Suspect]
     Active Substance: MORPHINE
     Indication: CANCER PAIN
     Dosage: AS NECESSARY
     Route: 042
  3. DULOXETINA                         /01749301/ [Suspect]
     Active Substance: DULOXETINE
     Indication: CANCER PAIN
     Dosage: 30 MILLIGRAM DAILY;
     Route: 065
  4. DESAMETASONE [Suspect]
     Active Substance: DEXAMETHASONE
     Indication: CANCER PAIN
     Dosage: 4 MILLIGRAM DAILY;
     Route: 042
  5. PARACETAMOL SOLUTION FOR INFUSION [Suspect]
     Active Substance: ACETAMINOPHEN
     Indication: CANCER PAIN
     Dosage: 500 MILLIGRAM  AS NECESSARY
     Route: 042
  6. MORFINA                            /00036301/ [Suspect]
     Active Substance: MORPHINE
     Indication: BREAKTHROUGH PAIN
     Dosage: ()
  7. FENTANYL. [Suspect]
     Active Substance: FENTANYL
     Indication: CANCER PAIN
     Dosage: 288 MICROGRAM DAILY;
     Route: 062

REACTIONS (3)
  - Vomiting [Unknown]
  - Somnolence [Unknown]
  - Nausea [Unknown]
